FAERS Safety Report 5282454-4 (Version None)
Quarter: 2007Q1

REPORT INFORMATION
  Report Type: 
  Country: None (occurrence: None)
  Receive Date: 20070326
  Receipt Date: 20070315
  Transmission Date: 20070707
  Serious: Yes (Hospitalization)
  Sender: FDA-Public Use
  Company Number: 238368

PATIENT
  Age: 13 Year
  Sex: Male
  Weight: 41.3 kg

DRUGS (4)
  1. NUTROPIN AQ [Suspect]
     Indication: GROWTH RETARDATION
     Dosage: 1.6 MG, 6/WEEK, SUBCUTANEOUS
     Route: 058
     Dates: start: 20021014
  2. CLONIDINE [Concomitant]
  3. RISPERDAL [Concomitant]
  4. ZOLOFT [Concomitant]

REACTIONS (1)
  - COLOSTOMY INFECTION [None]
